FAERS Safety Report 4492730-0 (Version None)
Quarter: 2004Q4

REPORT INFORMATION
  Report Type: 
  Country: None (occurrence: None)
  Receive Date: 20041104
  Receipt Date: 20040826
  Transmission Date: 20050328
  Serious: Yes (Death, Disabling, Other)
  Sender: FDA-Public Use
  Company Number: 200418582GDDC

PATIENT
  Age: 53 Year
  Sex: Male

DRUGS (6)
  1. CLEXANE [Suspect]
     Indication: DEEP VEIN THROMBOSIS
     Route: 051
     Dates: start: 20040821
  2. TENORMIN [Concomitant]
     Dosage: DOSE: UNKNOWN
  3. XANAX [Concomitant]
  4. EFFEXOR [Concomitant]
  5. KARVEA [Concomitant]
  6. WARFARIN SODIUM [Concomitant]
     Dosage: DOSE: 5-6

REACTIONS (5)
  - ABDOMINAL DISTENSION [None]
  - MYOCARDIAL INFARCTION [None]
  - PARAESTHESIA [None]
  - PARALYSIS [None]
  - PULMONARY EMBOLISM [None]
